FAERS Safety Report 5136765-3 (Version None)
Quarter: 2006Q4

REPORT INFORMATION
  Report Type: 
  Country: None (occurrence: None)
  Receive Date: 20061023
  Receipt Date: 20061010
  Transmission Date: 20070319
  Serious: Yes (Other)
  Sender: FDA-Public Use
  Company Number: 2006125800

PATIENT

DRUGS (1)
  1. LYRICA [Suspect]

REACTIONS (2)
  - DIPLOPIA [None]
  - IIIRD NERVE PARALYSIS [None]
